FAERS Safety Report 25185612 (Version 1)
Quarter: 2025Q2

REPORT INFORMATION
  Report Type: Spontaneous
  Country: FR (occurrence: FR)
  Receive Date: 20250410
  Receipt Date: 20250410
  Transmission Date: 20250716
  Serious: Yes (Other)
  Sender: TEVA
  Company Number: None

PATIENT
  Age: 98 Year
  Sex: Male

DRUGS (4)
  1. LANSOPRAZOLE [Suspect]
     Active Substance: LANSOPRAZOLE
     Indication: Gastrointestinal disorder
     Route: 048
     Dates: start: 20250304, end: 20250310
  2. BISOPROLOL [Suspect]
     Active Substance: BISOPROLOL
     Indication: Cardiac disorder
     Route: 048
     Dates: start: 20250309, end: 20250311
  3. AUGMENTIN [Suspect]
     Active Substance: AMOXICILLIN\CLAVULANATE POTASSIUM
     Indication: Infection
     Route: 042
     Dates: start: 20250301, end: 20250302
  4. AUGMENTIN [Suspect]
     Active Substance: AMOXICILLIN\CLAVULANATE POTASSIUM
     Indication: Infection
     Route: 048
     Dates: start: 20250303, end: 20250309

REACTIONS (1)
  - Rash morbilliform [Recovering/Resolving]

NARRATIVE: CASE EVENT DATE: 20250309
